FAERS Safety Report 5337011-8 (Version None)
Quarter: 2007Q2

REPORT INFORMATION
  Report Type: 
  Country: None (occurrence: None)
  Receive Date: 20070523
  Receipt Date: 20070515
  Transmission Date: 20071010
  Serious: Yes (Life-Threatening, Hospitalization)
  Sender: FDA-Public Use
  Company Number: 156362ISR

PATIENT
  Age: 59 Year
  Sex: Male

DRUGS (2)
  1. CISPLATIN [Suspect]
  2. PALIFERMIN [Suspect]
     Indication: MUCOSAL INFLAMMATION
     Dosage: SEE IMAGE
     Dates: start: 20061117, end: 20061208

REACTIONS (24)
  - ACUTE ABDOMEN [None]
  - ACUTE MYOCARDIAL INFARCTION [None]
  - ALTERED STATE OF CONSCIOUSNESS [None]
  - BEDRIDDEN [None]
  - BLOOD CHOLINESTERASE DECREASED [None]
  - BLOOD GLUCOSE INCREASED [None]
  - BLOOD LACTIC ACID INCREASED [None]
  - BLOOD TEST ABNORMAL [None]
  - BRAIN STEM INFARCTION [None]
  - ELECTROLYTE IMBALANCE [None]
  - FEEDING TUBE COMPLICATION [None]
  - GENERAL PHYSICAL HEALTH DETERIORATION [None]
  - HAEMOGLOBIN DECREASED [None]
  - HEPATIC CIRRHOSIS [None]
  - INFECTION [None]
  - INFLAMMATION [None]
  - MALNUTRITION [None]
  - NUCLEAR MAGNETIC RESONANCE IMAGING BRAIN ABNORMAL [None]
  - PERFORMANCE STATUS DECREASED [None]
  - PNEUMATOSIS INTESTINALIS [None]
  - PNEUMONIA [None]
  - PROTHROMBIN TIME PROLONGED [None]
  - SEPSIS [None]
  - UNEVALUABLE EVENT [None]
